FAERS Safety Report 25923577 (Version 1)
Quarter: 2025Q4

REPORT INFORMATION
  Report Type: Report from Study
  Country: IN (occurrence: IN)
  Receive Date: 20251015
  Receipt Date: 20251015
  Transmission Date: 20260117
  Serious: Yes (Hospitalization)
  Sender: ROCHE
  Company Number: IN-ROCHE-10000409526

PATIENT
  Age: 36 Year
  Sex: Male
  Weight: 78 kg

DRUGS (16)
  1. CELLCEPT [Suspect]
     Active Substance: MYCOPHENOLATE MOFETIL
     Indication: Renal transplant
     Dosage: 500MG T.I.D
     Route: 048
     Dates: start: 20180921
  2. AMLODIPINE BESYLATE [Concomitant]
     Active Substance: AMLODIPINE BESYLATE
  3. Cardivas [Concomitant]
  4. Pantocid [Concomitant]
  5. Softmega forte [Concomitant]
  6. DUPHALAC [Concomitant]
     Active Substance: LACTULOSE
  7. CLONAZEPAM [Concomitant]
     Active Substance: CLONAZEPAM
  8. TELMISARTAN [Concomitant]
     Active Substance: TELMISARTAN
  9. ROSUVASTATIN CALCIUM [Concomitant]
     Active Substance: ROSUVASTATIN CALCIUM
  10. Bio D3 [Concomitant]
  11. A-Z Gold [Concomitant]
  12. FEBUXOSTAT [Concomitant]
     Active Substance: FEBUXOSTAT
  13. PREDNISOLONE [Concomitant]
     Active Substance: PREDNISOLONE
  14. ACETYLCYSTEINE [Concomitant]
     Active Substance: ACETYLCYSTEINE
  15. CYCLOSPORINE [Concomitant]
     Active Substance: CYCLOSPORINE
  16. CYCLOSPORINE [Concomitant]
     Active Substance: CYCLOSPORINE

REACTIONS (6)
  - Haematuria [Unknown]
  - Acute kidney injury [Unknown]
  - Prostatitis [Unknown]
  - Pilonidal disease [Unknown]
  - Proteinuria [Unknown]
  - Blood creatinine increased [Unknown]

NARRATIVE: CASE EVENT DATE: 20200201
